FAERS Safety Report 6451445-X (Version None)
Quarter: 2009Q4

REPORT INFORMATION
  Report Type: 
  Country: None (occurrence: None)
  Receive Date: 20091123
  Receipt Date: 20081121
  Transmission Date: 20100525
  Serious: No
  Sender: FDA-Public Use
  Company Number: US-BRISTOL-MYERS SQUIBB COMPANY-14419253

PATIENT
  Sex: Female

DRUGS (1)
  1. AVALIDE [Suspect]
     Dosage: 1DF=150/12.5(UNITS NOT MENTIONED)

REACTIONS (2)
  - DIZZINESS [None]
  - HEADACHE [None]
